FAERS Safety Report 24847943 (Version 1)
Quarter: 2025Q1

REPORT INFORMATION
  Report Type: Spontaneous
  Country: US (occurrence: US)
  Receive Date: 20250116
  Receipt Date: 20250116
  Transmission Date: 20250408
  Serious: Yes (Other)
  Sender: UCB
  Company Number: US-UCBSA-2025001596

PATIENT
  Age: 43 Year
  Sex: Female
  Weight: 95.374 kg

DRUGS (2)
  1. CIMZIA [Suspect]
     Active Substance: CERTOLIZUMAB PEGOL
     Indication: Psoriatic arthropathy
     Dosage: 200 MILLIGRAM, EV 2 WEEKS(QOW)
     Route: 058
  2. MELOXICAM [Suspect]
     Active Substance: MELOXICAM
     Indication: Pain

REACTIONS (2)
  - Psoriatic arthropathy [Not Recovered/Not Resolved]
  - Blood pressure increased [Not Recovered/Not Resolved]

NARRATIVE: CASE EVENT DATE: 20241201
